FAERS Safety Report 25622890 (Version 1)
Quarter: 2025Q3

REPORT INFORMATION
  Report Type: Spontaneous
  Country: US (occurrence: None)
  Receive Date: 20250729
  Receipt Date: 20250729
  Transmission Date: 20251021
  Serious: Yes (Other)
  Sender: FDA-CTU
  Company Number: None

PATIENT
  Age: 40 Year
  Sex: Female
  Weight: 57.15 kg

DRUGS (9)
  1. PAXLOVID [Suspect]
     Active Substance: NIRMATRELVIR\RITONAVIR
  2. Maxalt (IO mg) as needed for menstrual related migraine [Concomitant]
  3. Zyrtec (as needed) [Concomitant]
  4. FISH OIL [Concomitant]
     Active Substance: FISH OIL
  5. VITAMINS [Concomitant]
     Active Substance: VITAMINS
  6. VITAMIN D [Concomitant]
     Active Substance: VITAMIN D NOS
  7. DIM [Concomitant]
  8. Tylenol and/or ibuprofen for menstrual related migraine as needed. [Concomitant]
  9. Magnesium glycinate (2X daily) at 200 mg [Concomitant]

REACTIONS (6)
  - Palpitations [None]
  - Chest pain [None]
  - Anxiety [None]
  - Night sweats [None]
  - Blood thyroid stimulating hormone increased [None]
  - Panic attack [None]

NARRATIVE: CASE EVENT DATE: 20250218
